FAERS Safety Report 5178881-6 (Version None)
Quarter: 2006Q4

REPORT INFORMATION
  Report Type: 
  Country: None (occurrence: None)
  Receive Date: 20061208
  Receipt Date: 20061130
  Transmission Date: 20070319
  Serious: Yes (Life-Threatening, Hospitalization, Disabling)
  Sender: FDA-Public Use
  Company Number: 2002-03-1008

PATIENT
  Age: 46 Year
  Sex: Female
  Weight: 74.3899 kg

DRUGS (6)
  1. PEG-INTRON [Suspect]
     Indication: HEPATITIS C
     Dosage: 96 MCG; QW; SC
     Route: 058
     Dates: start: 20011123, end: 20020208
  2. REBETOL [Suspect]
     Indication: HEPATITIS C
     Dosage: 1000 MG; QD; PO
     Route: 048
     Dates: start: 20011123, end: 20020215
  3. ZOLOFT [Suspect]
     Indication: DEPRESSION
     Dosage: 100 MG; QD; PO
     Route: 048
  4. ATENOLOL (CON.) [Concomitant]
  5. NEXIUM (ESOMEPRAZOLE) (CON.) [Concomitant]
  6. PREMARIN (CON.) [Concomitant]

REACTIONS (6)
  - DIALYSIS [None]
  - EXPOSURE TO TOXIC AGENT [None]
  - INJURY [None]
  - LIFE SUPPORT [None]
  - RENAL FAILURE [None]
  - SUICIDE ATTEMPT [None]
